FAERS Safety Report 8494796-X (Version None)
Quarter: 2012Q3

REPORT INFORMATION
  Report Type: 
  Country: None (occurrence: None)
  Receive Date: 20120709
  Receipt Date: 20120702
  Transmission Date: 20120928
  Serious: Yes (Hospitalization)
  Sender: FDA-Public Use
  Company Number: US-BAYER-2012-050293

PATIENT
  Age: 28 Year
  Sex: Female
  Weight: 102 kg

DRUGS (1)
  1. YASMIN [Suspect]
     Dosage: 1 DF, QD
     Route: 048
     Dates: start: 20070301, end: 20070401

REACTIONS (8)
  - PAIN IN EXTREMITY [None]
  - GENERAL PHYSICAL HEALTH DETERIORATION [None]
  - DEEP VEIN THROMBOSIS [None]
  - PAIN [None]
  - ANXIETY [None]
  - EMOTIONAL DISTRESS [None]
  - ANHEDONIA [None]
  - INJURY [None]
